FAERS Safety Report 7588454-3 (Version None)
Quarter: 2011Q3

REPORT INFORMATION
  Report Type: 
  Country: None (occurrence: None)
  Receive Date: 20110705
  Receipt Date: 20110614
  Transmission Date: 20111222
  Serious: Yes (Life-Threatening, Other)
  Sender: FDA-Public Use
  Company Number: US-BAYER-201039494NA

PATIENT
  Age: 30 Year
  Sex: Female
  Weight: 70.748 kg

DRUGS (25)
  1. FLUOXETINE HCL [Concomitant]
     Dosage: 40 MG, UNK
     Dates: start: 20091224, end: 20100204
  2. FLUCONAZOLE [Concomitant]
     Dosage: 200 MG, UNK
     Dates: start: 20091224, end: 20100204
  3. PROMETHAZINE [Concomitant]
  4. CEFDINIR [Concomitant]
  5. AZITHROMYCIN [Concomitant]
  6. METRONIDAZOLE [Concomitant]
  7. CLONAZEPAM [Concomitant]
  8. HYDROCORT AC [Concomitant]
  9. METOCLOPRAM [Concomitant]
  10. CEPHADYN [Concomitant]
  11. YASMIN [Suspect]
     Indication: ORAL CONTRACEPTION
     Dosage: UNK UNK, UNK
     Route: 048
     Dates: start: 20060101, end: 20080101
  12. DIAZEPAM [Concomitant]
     Dosage: 5 MG, UNK
     Dates: start: 20091210
  13. TAMIFLU [Concomitant]
  14. TUSSIONEX [Concomitant]
  15. DROSPIRENONE AND ETHINYL ESTRADIOL [Suspect]
     Indication: ORAL CONTRACEPTION
     Dosage: UNK UNK, UNK
     Dates: start: 20080101, end: 20091101
  16. HYDROCODONE BITARTRATE AND ACETAMINOPHEN [Concomitant]
     Dosage: 500 MG, UNK
     Dates: start: 20100225
  17. BUSPIRONE HCL [Concomitant]
     Dosage: 7.5 MG, UNK
     Dates: start: 20091202, end: 20100204
  18. LEVAQUIN [Concomitant]
     Dosage: 750 MG, UNK
  19. PROZAC [Concomitant]
  20. DICYCLOMINE [Concomitant]
  21. NEXIUM [Concomitant]
     Dosage: 40 MG, UNK
     Dates: start: 20091210, end: 20100222
  22. CIPROFLOXACIN [Concomitant]
  23. NAPROXEN SODIUM + PSEUDOEPHEDRINE [Concomitant]
  24. CEFUROXIME [Concomitant]
  25. BUTALBITAL ACETAMINOPHEN AND CAFFEINE [Concomitant]

REACTIONS (5)
  - GALLBLADDER NON-FUNCTIONING [None]
  - UNEVALUABLE EVENT [None]
  - INJURY [None]
  - BILIARY DYSKINESIA [None]
  - CHOLECYSTITIS CHRONIC [None]
